FAERS Safety Report 4539017-5 (Version None)
Quarter: 2004Q4

REPORT INFORMATION
  Report Type: 
  Country: None (occurrence: None)
  Receive Date: 20041222
  Receipt Date: 20041130
  Transmission Date: 20050328
  Serious: Yes (Hospitalization)
  Sender: FDA-Public Use
  Company Number: US_0412108917

PATIENT
  Age: 68 Year
  Sex: Female

DRUGS (16)
  1. ZYPREXA [Suspect]
     Dosage: 20 MG
     Dates: start: 20020101
  2. WELLBUTRIN [Concomitant]
  3. PROCRIT (ERYTHROPOIETIN) [Concomitant]
  4. IRON [Concomitant]
  5. DEPAKOTE [Concomitant]
  6. FOLIC ACID [Concomitant]
  7. M.V.I. [Concomitant]
  8. VASOTEC [Concomitant]
  9. BENADRYL [Concomitant]
  10. INSULIN [Concomitant]
  11. 'ARTISONE' [Concomitant]
  12. DIABETA (GLIBENCLAMIDE0 [Concomitant]
  13. MIACALCIN [Concomitant]
  14. CALCIUM [Concomitant]
  15. GLUCERNA [Concomitant]
  16. 'NANONE' [Concomitant]

REACTIONS (10)
  - ANAEMIA [None]
  - CEREBRAL ATROPHY [None]
  - CEREBROVASCULAR ACCIDENT [None]
  - FALL [None]
  - HYPERTENSION [None]
  - HYPOTENSION [None]
  - IRRITABILITY [None]
  - KNEE OPERATION [None]
  - SCREAMING [None]
  - SPEECH DISORDER [None]
